FAERS Safety Report 5134078-7 (Version None)
Quarter: 2006Q4

REPORT INFORMATION
  Report Type: 
  Country: None (occurrence: None)
  Receive Date: 20061024
  Receipt Date: 20061013
  Transmission Date: 20070319
  Serious: Yes (Hospitalization)
  Sender: FDA-Public Use
  Company Number: US-KINGPHARMUSA00001-K200601315

PATIENT
  Age: 68 Year
  Sex: Female
  Weight: 71 kg

DRUGS (6)
  1. ALTACE [Suspect]
     Indication: HYPERTENSION
     Dosage: 5 MG, BID
     Route: 048
     Dates: start: 20020322, end: 20050419
  2. VYTORIN [Concomitant]
     Indication: BLOOD CHOLESTEROL
  3. ATENOLOL [Concomitant]
     Indication: VENTRICULAR EXTRASYSTOLES
     Dosage: 200 MG, QD  (100MG BID)
  4. ASPIRIN [Concomitant]
     Dosage: 325 MG, QD
  5. FISH OIL [Concomitant]
     Dosage: 2400 MG, QD
  6. DYNACIRC [Concomitant]
     Dosage: 10 MG, UNK

REACTIONS (9)
  - ACUTE CORONARY SYNDROME [None]
  - ATRIAL FIBRILLATION [None]
  - BLOOD CREATININE INCREASED [None]
  - BLOOD UREA INCREASED [None]
  - CORONARY ARTERY DISEASE [None]
  - FATIGUE [None]
  - PAIN [None]
  - RENAL FAILURE [None]
  - TACHYCARDIA [None]
